FAERS Safety Report 20992265 (Version 1)
Quarter: 2022Q2

REPORT INFORMATION
  Report Type: Spontaneous
  Country: US (occurrence: None)
  Receive Date: 20220621
  Receipt Date: 20220621
  Transmission Date: 20220720
  Serious: No
  Sender: FDA-Public Use
  Company Number: None

PATIENT
  Age: 85 Year
  Sex: Male
  Weight: 83.46 kg

DRUGS (2)
  1. XTANDI [Suspect]
     Active Substance: ENZALUTAMIDE
     Indication: Prostate cancer
     Dosage: FREQUENCY : DAILY;?
     Route: 048
  2. XTANDI [Suspect]
     Active Substance: ENZALUTAMIDE

REACTIONS (5)
  - Fall [None]
  - Back pain [None]
  - Gait disturbance [None]
  - Walking aid user [None]
  - Blood glucose increased [None]

NARRATIVE: CASE EVENT DATE: 20220501
